FAERS Safety Report 5431664-1 (Version None)
Quarter: 2007Q3

REPORT INFORMATION
  Report Type: 
  Country: None (occurrence: None)
  Receive Date: 20070830
  Receipt Date: 20070823
  Transmission Date: 20080115
  Serious: No
  Sender: FDA-Public Use
  Company Number: JP-ASTRAZENECA-2007AP05291

PATIENT
  Age: 15 Year
  Sex: Male

DRUGS (3)
  1. PULMICORT RESPULES [Suspect]
     Indication: ASTHMA
     Route: 055
     Dates: start: 20070801, end: 20070801
  2. QVAR 40 [Concomitant]
     Indication: ASTHMA
     Route: 055
     Dates: start: 20060704, end: 20070808
  3. ONON [Concomitant]
     Indication: ASTHMA
     Route: 048
     Dates: start: 20060710

REACTIONS (5)
  - APPLICATION SITE ERYTHEMA [None]
  - COUGH [None]
  - DYSPNOEA [None]
  - PHARYNGOLARYNGEAL DISCOMFORT [None]
  - VOMITING [None]
